FAERS Safety Report 16259831 (Version 1)
Quarter: 2019Q2

REPORT INFORMATION
  Report Type: Spontaneous
  Country: JP (occurrence: JP)
  Receive Date: 20190501
  Receipt Date: 20190501
  Transmission Date: 20190711
  Serious: Yes (Other)
  Sender: FDA-Public Use
  Company Number: JP-UCBSA-2019016680

PATIENT
  Age: 8 Year
  Sex: Male

DRUGS (2)
  1. XYZAL [Suspect]
     Active Substance: LEVOCETIRIZINE DIHYDROCHLORIDE
     Indication: ECZEMA
     Dosage: 2.5 MG, BID
     Route: 048
     Dates: start: 201810, end: 201901
  2. BETAMETHASONE BUTYRATE PROPIONATE [Concomitant]
     Active Substance: BETAMETHASONE BUTYRATE PROPIONATE
     Indication: ALOPECIA AREATA
     Dosage: UNK
     Dates: start: 201810, end: 201901

REACTIONS (1)
  - Alopecia areata [Not Recovered/Not Resolved]
